FAERS Safety Report 8068187-X (Version None)
Quarter: 2012Q1

REPORT INFORMATION
  Report Type: 
  Country: None (occurrence: None)
  Receive Date: 20120124
  Receipt Date: 20110901
  Transmission Date: 20120608
  Serious: No
  Sender: FDA-Public Use
  Company Number: US-AMGEN-USASP2011044936

PATIENT
  Sex: Female

DRUGS (7)
  1. XANAX [Concomitant]
  2. PROTONIX [Concomitant]
  3. NEURONTIN [Concomitant]
  4. PROLIA [Suspect]
     Indication: OSTEOPOROSIS
     Dosage: UNK
     Dates: start: 20110101
  5. ATENOLOL [Concomitant]
  6. PAXIL [Concomitant]
  7. SYNTHROID [Concomitant]

REACTIONS (5)
  - PAIN [None]
  - BONE DISORDER [None]
  - GAIT DISTURBANCE [None]
  - ARTHRALGIA [None]
  - INSOMNIA [None]
